FAERS Safety Report 9411502 (Version 1)
Quarter: 2013Q3

REPORT INFORMATION
  Report Type: Spontaneous
  Country: US (occurrence: None)
  Receive Date: 20130718
  Receipt Date: 20130718
  Transmission Date: 20140515
  Serious: Yes (Other)
  Sender: FDA-Public Use
  Company Number: None

PATIENT
  Age: 3 Year
  Sex: Male
  Weight: 90.72 kg

DRUGS (1)
  1. AMPHETAMINE SALTS [Suspect]
     Indication: ATTENTION DEFICIT/HYPERACTIVITY DISORDER
     Dosage: 30 MG 1/2PILL 4 TIMES PER DAY ORAL
     Route: 048
     Dates: start: 20130706

REACTIONS (5)
  - Tic [None]
  - Anxiety [None]
  - Irritability [None]
  - Vision blurred [None]
  - Hypoacusis [None]
